FAERS Safety Report 15812602 (Version 1)
Quarter: 2019Q1

REPORT INFORMATION
  Report Type: Spontaneous
  Country: US (occurrence: US)
  Receive Date: 20190111
  Receipt Date: 20190111
  Transmission Date: 20190417
  Serious: No
  Sender: FDA-Public Use
  Company Number: US-GLAXOSMITHKLINE-US2019000463

PATIENT
  Sex: Female

DRUGS (4)
  1. ATOVAQUONE + PROGUANIL HYDROCHLORIDE TABLET [Suspect]
     Active Substance: ATOVAQUONE\PROGUANIL HYDROCHLORIDE
     Dosage: 1 DF, QD
     Route: 048
  2. ATOVAQUONE + PROGUANIL HYDROCHLORIDE TABLET [Suspect]
     Active Substance: ATOVAQUONE\PROGUANIL HYDROCHLORIDE
     Indication: MALARIA PROPHYLAXIS
     Dosage: 3 DF, QD
     Route: 048
  3. MALARONE [Suspect]
     Active Substance: ATOVAQUONE\PROGUANIL HYDROCHLORIDE
     Indication: MALARIA PROPHYLAXIS
     Dosage: 3 DF, QD
     Route: 048
  4. MALARONE [Suspect]
     Active Substance: ATOVAQUONE\PROGUANIL HYDROCHLORIDE
     Dosage: 1 DF, QD
     Route: 048

REACTIONS (3)
  - Underdose [Unknown]
  - Pyrexia [Unknown]
  - Chills [Unknown]
